FAERS Safety Report 12939080 (Version 1)
Quarter: 2016Q4

REPORT INFORMATION
  Report Type: Spontaneous
  Country: US (occurrence: US)
  Receive Date: 20161114
  Receipt Date: 20161114
  Transmission Date: 20170207
  Serious: No
  Sender: FDA-Public Use
  Company Number: US-ACADIA PHARMACEUTICALS INC.-ACA-2016-000448

PATIENT
  Age: 80 Year
  Sex: Male
  Weight: 58.96 kg

DRUGS (1)
  1. NUPLAZID [Suspect]
     Active Substance: PIMAVANSERIN TARTRATE
     Indication: PARKINSON^S DISEASE PSYCHOSIS
     Dosage: 17 MG, QD
     Route: 048
     Dates: start: 20160817, end: 20160819

REACTIONS (4)
  - Muscular weakness [Recovered/Resolved]
  - Incoherent [Recovered/Resolved]
  - Somnolence [Recovered/Resolved]
  - Speech disorder [Recovered/Resolved]

NARRATIVE: CASE EVENT DATE: 20160817
